FAERS Safety Report 4478177-1 (Version None)
Quarter: 2004Q3

REPORT INFORMATION
  Report Type: 
  Country: None (occurrence: None)
  Receive Date: 20040923
  Receipt Date: 20040722
  Transmission Date: 20050211
  Serious: No
  Sender: FDA-Public Use
  Company Number: USA040773362

PATIENT
  Sex: Female

DRUGS (1)
  1. FORTEO [Suspect]
     Indication: OSTEOPOROSIS
     Dates: start: 20040719

REACTIONS (4)
  - FATIGUE [None]
  - HEART RATE INCREASED [None]
  - INSOMNIA [None]
  - MUSCLE TWITCHING [None]
